FAERS Safety Report 17192538 (Version 1)
Quarter: 2019Q4

REPORT INFORMATION
  Report Type: Report from Study
  Country: None (occurrence: CO)
  Receive Date: 20191223
  Receipt Date: 20191223
  Transmission Date: 20200122
  Serious: Yes (Death, Life-Threatening, Hospitalization)
  Sender: FDA-Public Use
  Company Number: CO-ABBVIE-17K-036-3083959-00

PATIENT
  Age: 69 Year
  Sex: Male
  Weight: 92 kg

DRUGS (2)
  1. IMBRUVICA [Suspect]
     Active Substance: IBRUTINIB
     Route: 048
     Dates: start: 20170804
  2. IMBRUVICA [Suspect]
     Active Substance: IBRUTINIB
     Indication: MANTLE CELL LYMPHOMA
     Route: 048
     Dates: start: 20170904

REACTIONS (11)
  - Vomiting [Recovered/Resolved]
  - Dysphagia [Unknown]
  - Inflammation [Unknown]
  - Coma [Unknown]
  - Pleural effusion [Unknown]
  - Shock [Unknown]
  - Respiratory distress [Unknown]
  - Mantle cell lymphoma [Fatal]
  - Urticaria [Recovering/Resolving]
  - Rash [Unknown]
  - Throat irritation [Unknown]

NARRATIVE: CASE EVENT DATE: 20170809
